FAERS Safety Report 24887365 (Version 2)
Quarter: 2025Q1

REPORT INFORMATION
  Report Type: Spontaneous
  Country: US (occurrence: US)
  Receive Date: 20250127
  Receipt Date: 20250130
  Transmission Date: 20250409
  Serious: Yes (Death)
  Sender: UROGEN PHARMA
  Company Number: US-UROGEN PHARMA LTD.-2025-UGN-000005

PATIENT

DRUGS (6)
  1. JELMYTO [Suspect]
     Active Substance: MITOMYCIN
     Indication: Transitional cell cancer of the renal pelvis and ureter
     Dosage: 7 OR 8 MILLILITER, ONCE A WEEK (INSTILLATION)
     Dates: start: 20241108, end: 20241108
  2. JELMYTO [Suspect]
     Active Substance: MITOMYCIN
     Dosage: 7 OR 8 MILLILITER, ONCE A WEEK (INSTILLATION)
     Dates: start: 20241115, end: 20241115
  3. JELMYTO [Suspect]
     Active Substance: MITOMYCIN
     Dosage: 7 OR 8 MILLILITER, ONCE A WEEK (INSTILLATION)
     Dates: start: 20241122, end: 20241122
  4. JELMYTO [Suspect]
     Active Substance: MITOMYCIN
     Dosage: 7 OR 8 MILLILITER, ONCE A WEEK (INSTILLATION)
     Dates: start: 20241129, end: 20241129
  5. JELMYTO [Suspect]
     Active Substance: MITOMYCIN
     Dosage: 7 OR 8 MILLILITER, ONCE A WEEK (INSTILLATION)
     Dates: start: 20241206, end: 20241206
  6. JELMYTO [Suspect]
     Active Substance: MITOMYCIN
     Dosage: 7 OR 8 MILLILITER, ONCE A WEEK (INSTILLATION)
     Dates: start: 20241220, end: 20241220

REACTIONS (1)
  - Death [Fatal]

NARRATIVE: CASE EVENT DATE: 20241201
